FAERS Safety Report 18140184 (Version 1)
Quarter: 2020Q3

REPORT INFORMATION
  Report Type: Spontaneous
  Country: US (occurrence: US)
  Receive Date: 20200812
  Receipt Date: 20200812
  Transmission Date: 20201103
  Serious: No
  Sender: FDA-Public Use
  Company Number: None

PATIENT
  Age: 72 Year
  Sex: Male

DRUGS (1)
  1. NOVOLOG [Suspect]
     Active Substance: INSULIN ASPART
     Indication: DIABETES MELLITUS
     Dosage: ?          OTHER STRENGTH:100U/ML, 3ML;?
     Route: 058
     Dates: start: 20190305, end: 20190325

REACTIONS (1)
  - Rash [None]

NARRATIVE: CASE EVENT DATE: 20190323
